FAERS Safety Report 15974670 (Version 1)
Quarter: 2019Q1

REPORT INFORMATION
  Report Type: Spontaneous
  Country: ES (occurrence: ES)
  Receive Date: 20190218
  Receipt Date: 20190218
  Transmission Date: 20190418
  Serious: Yes (Hospitalization)
  Sender: FDA-Public Use
  Company Number: ES-TEVA-2019-ES-1012268

PATIENT
  Age: 51 Year
  Sex: Female
  Weight: 57 kg

DRUGS (1)
  1. DOCETAXEL AUROVITAS 20 MG/ML CONCENTRADO PARA SOLUCION PARA PERFUSION [Suspect]
     Active Substance: DOCETAXEL
     Route: 042
     Dates: start: 20181205, end: 20181205

REACTIONS (3)
  - Drug hypersensitivity [Recovered/Resolved]
  - Flushing [Recovered/Resolved]
  - Feeling hot [Recovered/Resolved]

NARRATIVE: CASE EVENT DATE: 20181205
